FAERS Safety Report 5713670-2 (Version None)
Quarter: 2008Q2

REPORT INFORMATION
  Report Type: 
  Country: None (occurrence: None)
  Receive Date: 20080422
  Receipt Date: 20080415
  Transmission Date: 20081010
  Serious: Yes (Hospitalization, Other)
  Sender: FDA-Public Use
  Company Number: CZ-ABBOTT-07P-217-0427772-00

PATIENT
  Sex: Male

DRUGS (13)
  1. HUMIRA [Suspect]
     Indication: ANKYLOSING SPONDYLITIS
     Route: 058
     Dates: start: 20070828
  2. TRIMETAZIDINE [Concomitant]
     Indication: DRUG USE FOR UNKNOWN INDICATION
     Dosage: 1-0-1
  3. MOLSIDOMINE [Concomitant]
     Indication: DRUG USE FOR UNKNOWN INDICATION
     Dosage: 0-0-1
  4. SIMVASTATIN [Concomitant]
     Indication: DRUG USE FOR UNKNOWN INDICATION
     Dosage: 0-1-1
  5. ACETYLSALICYLIC ACID SRT [Concomitant]
     Indication: DRUG USE FOR UNKNOWN INDICATION
     Dosage: 0-1-0
  6. AKTIFERRIN [Concomitant]
     Indication: DRUG USE FOR UNKNOWN INDICATION
     Dosage: 1-0-1
  7. BISULEPIN HYDROCHLORIDE [Concomitant]
     Indication: DRUG USE FOR UNKNOWN INDICATION
  8. METHYLPREDNISOLONE [Concomitant]
     Indication: DRUG USE FOR UNKNOWN INDICATION
     Dosage: 1-0-0
  9. INDOMETHACIN [Concomitant]
     Indication: DRUG USE FOR UNKNOWN INDICATION
     Dosage: INTO THE RIGHT EYE
  10. PEFLOXACIN [Concomitant]
     Indication: DRUG USE FOR UNKNOWN INDICATION
  11. BACTRIM [Concomitant]
     Indication: DRUG USE FOR UNKNOWN INDICATION
     Dosage: LAST TABLET TAKEN ON 16 NOV 2007
  12. APO-SIMVA [Concomitant]
     Indication: DRUG USE FOR UNKNOWN INDICATION
     Dosage: 0-1-1
  13. OMEPRAZOLE [Concomitant]
     Indication: DRUG USE FOR UNKNOWN INDICATION
     Dosage: 0-1-1

REACTIONS (25)
  - ABDOMINAL PAIN UPPER [None]
  - ABDOMINAL TENDERNESS [None]
  - ANOREXIA [None]
  - ARTHRALGIA [None]
  - BILIARY COLIC [None]
  - BLINDNESS UNILATERAL [None]
  - BUNDLE BRANCH BLOCK LEFT [None]
  - CHOLELITHIASIS [None]
  - CONSTIPATION [None]
  - DIARRHOEA [None]
  - DIVERTICULITIS [None]
  - DYSPLASIA [None]
  - DYSURIA [None]
  - ENTEROVESICAL FISTULA [None]
  - GASTROINTESTINAL TRACT ADENOMA [None]
  - HAEMATOCHEZIA [None]
  - HAEMORRHOIDS [None]
  - HEPATIC LESION [None]
  - INTESTINAL HAEMORRHAGE [None]
  - PNEUMATURIA [None]
  - POSTURE ABNORMAL [None]
  - PROSTATIC CALCIFICATION [None]
  - RENAL CYST [None]
  - URINARY TRACT INFECTION [None]
  - WEIGHT DECREASED [None]
